FAERS Safety Report 8571626 (Version 10)
Quarter: 2015Q3

REPORT INFORMATION
  Report Type: Spontaneous
  Country: US (occurrence: US)
  Receive Date: 20120521
  Receipt Date: 20150924
  Transmission Date: 20151125
  Serious: Yes (Death, Hospitalization, Disabling, Other)
  Sender: FDA-Public Use
  Company Number: US-009507513-1205USA02884

PATIENT
  Sex: Female

DRUGS (10)
  1. ESTROGEN NOS [Concomitant]
     Active Substance: ESTROGENS
     Indication: OSTEOPENIA
     Dosage: UNK
     Dates: start: 20020927
  2. RECLAST [Concomitant]
     Active Substance: ZOLEDRONIC ACID
     Indication: OSTEOPOROSIS
     Dosage: 5 MG, UNK
     Route: 041
     Dates: start: 200806
  3. FOSAMAX [Suspect]
     Active Substance: ALENDRONATE SODIUM
     Indication: OSTEOPENIA
     Dosage: 70 MG, UNK
     Route: 048
     Dates: start: 20020927, end: 200510
  4. BONIVA [Concomitant]
     Active Substance: IBANDRONATE SODIUM
     Indication: OSTEOPENIA
     Dosage: 150 MG, UNK
     Route: 048
     Dates: start: 20061220, end: 2009
  5. CALCIUM (UNSPECIFIED) [Concomitant]
     Active Substance: CALCIUM
     Indication: OSTEOPENIA
     Dosage: 1500-1800 MG QD
     Dates: start: 20020927
  6. FOSAMAX [Suspect]
     Active Substance: ALENDRONATE SODIUM
     Indication: OSTEOPOROSIS
     Dosage: UNK
     Route: 048
     Dates: start: 2004
  7. CALCIUM (UNSPECIFIED) [Concomitant]
     Active Substance: CALCIUM
     Indication: OSTEOPENIA
  8. BONIVA [Concomitant]
     Active Substance: IBANDRONATE SODIUM
     Indication: OSTEOPOROSIS
  9. RECLAST [Concomitant]
     Active Substance: ZOLEDRONIC ACID
     Indication: OSTEOPENIA
  10. VITAMIN D [Concomitant]
     Active Substance: CHOLECALCIFEROL
     Indication: OSTEOPENIA
     Dosage: 400-800 IU QD
     Dates: start: 20020927

REACTIONS (82)
  - Bursa disorder [Recovered/Resolved]
  - Wound drainage [Recovered/Resolved]
  - Fall [Unknown]
  - Exostosis [Unknown]
  - Carpal tunnel syndrome [Unknown]
  - Scoliosis [Unknown]
  - Hand fracture [Unknown]
  - Asthma [Unknown]
  - Arthralgia [Unknown]
  - Acetabulum fracture [Unknown]
  - Low turnover osteopathy [Not Recovered/Not Resolved]
  - Parkinson^s disease [Unknown]
  - Femur fracture [Recovered/Resolved]
  - Fall [Unknown]
  - Foot fracture [Unknown]
  - Pain [Unknown]
  - Fall [Unknown]
  - Patellofemoral pain syndrome [Unknown]
  - Loss of anatomical alignment after fracture reduction [Unknown]
  - Arthralgia [Unknown]
  - Intramedullary rod insertion [Unknown]
  - Disease progression [Unknown]
  - Femur fracture [Not Recovered/Not Resolved]
  - Device failure [Unknown]
  - Radius fracture [Unknown]
  - Arthroscopy [Unknown]
  - Hysterectomy [Unknown]
  - Pelvic floor repair [Unknown]
  - Fall [Unknown]
  - Bursitis [Not Recovered/Not Resolved]
  - Oophorectomy [Unknown]
  - Cellulitis [Recovering/Resolving]
  - Cardio-respiratory arrest [Unknown]
  - Femur fracture [Not Recovered/Not Resolved]
  - Meniscus injury [Unknown]
  - Traumatic arthritis [Unknown]
  - Foot fracture [Unknown]
  - Intramedullary rod insertion [Unknown]
  - Fracture nonunion [Unknown]
  - Contusion [Unknown]
  - Patella fracture [Unknown]
  - Scoliosis [Not Recovered/Not Resolved]
  - Acquired claw toe [Unknown]
  - Impaired healing [Unknown]
  - Acute myocardial infarction [Unknown]
  - Fall [Unknown]
  - Femur fracture [Not Recovered/Not Resolved]
  - Femur fracture [Unknown]
  - Calcium deficiency [Unknown]
  - Contusion [Unknown]
  - Vertebral foraminal stenosis [Unknown]
  - Ligament rupture [Not Recovered/Not Resolved]
  - Radiculopathy [Unknown]
  - Ilium fracture [Not Recovered/Not Resolved]
  - Wrist fracture [Unknown]
  - Ankle fracture [Unknown]
  - Pelvic fracture [Unknown]
  - Foot deformity [Unknown]
  - Cerebrovascular accident [Fatal]
  - Osteoporosis [Not Recovered/Not Resolved]
  - Stress fracture [Not Recovered/Not Resolved]
  - Femur fracture [Unknown]
  - Fall [Unknown]
  - Musculoskeletal disorder [Unknown]
  - Anxiety [Unknown]
  - Impaired healing [Unknown]
  - Arthritis [Unknown]
  - Open reduction of fracture [Unknown]
  - Intramedullary rod insertion [Unknown]
  - Dysarthria [Recovering/Resolving]
  - Open reduction of fracture [Unknown]
  - Adverse event [Unknown]
  - Contusion [Unknown]
  - Joint injury [Unknown]
  - Osteoarthritis [Unknown]
  - Lumbar spinal stenosis [Unknown]
  - Candida infection [Unknown]
  - Wrist surgery [Unknown]
  - Arthropathy [Unknown]
  - Vitamin B12 deficiency [Unknown]
  - Palpitations [Unknown]
  - Gastrooesophageal reflux disease [Unknown]

NARRATIVE: CASE EVENT DATE: 2002
